FAERS Safety Report 4822461-6 (Version None)
Quarter: 2005Q4

REPORT INFORMATION
  Report Type: 
  Country: None (occurrence: None)
  Receive Date: 20051103
  Receipt Date: 20051103
  Transmission Date: 20060501
  Serious: Yes (Life-Threatening)
  Sender: FDA-Public Use
  Company Number: None

PATIENT
  Age: 80 Year
  Sex: Male
  Weight: 99.7913 kg

DRUGS (8)
  1. HYDROMORPHONE HCL [Suspect]
     Indication: PAIN MANAGEMENT
     Dosage: 1 MG IV X 1
     Route: 042
     Dates: start: 20050921
  2. GABAPENTIN [Concomitant]
  3. LIPITOR [Concomitant]
  4. SEROQUEL [Concomitant]
  5. LANTUS [Concomitant]
  6. TEMAZEPAM [Concomitant]
  7. VICODIN [Concomitant]
  8. VANCOMYCIN [Concomitant]

REACTIONS (1)
  - ACUTE RESPIRATORY FAILURE [None]
